FAERS Safety Report 18667919 (Version 1)
Quarter: 2020Q4

REPORT INFORMATION
  Report Type: Report from Study
  Country: None (occurrence: US)
  Receive Date: 20201228
  Receipt Date: 20201228
  Transmission Date: 20210114
  Serious: Yes (Hospitalization)
  Sender: FDA-Public Use
  Company Number: US-INSMED, INC.-US-INS-20-01350

PATIENT
  Sex: Male

DRUGS (1)
  1. ARIKAYCE [Suspect]
     Active Substance: AMIKACIN
     Indication: MYCOBACTERIAL INFECTION
     Route: 055
     Dates: start: 2020, end: 202007

REACTIONS (7)
  - Hospitalisation [Unknown]
  - Secretion discharge [Unknown]
  - Decreased appetite [Unknown]
  - Urticaria [Unknown]
  - Hypersensitivity [Unknown]
  - Cough [Unknown]
  - Rash macular [Unknown]

NARRATIVE: CASE EVENT DATE: 2020
